FAERS Safety Report 21435074 (Version 1)
Quarter: 2022Q4

REPORT INFORMATION
  Report Type: Spontaneous
  Country: CA (occurrence: None)
  Receive Date: 20221010
  Receipt Date: 20221010
  Transmission Date: 20230112
  Serious: Yes (Hospitalization, Other)
  Sender: FDA-Public Use
  Company Number: CA-MICRO LABS LIMITED-ML2022-04961

PATIENT
  Age: 58 Year
  Sex: Female

DRUGS (1)
  1. KETOROLAC [Suspect]
     Active Substance: KETOROLAC TROMETHAMINE
     Indication: Osteoarthritis

REACTIONS (4)
  - Obstruction gastric [Recovering/Resolving]
  - Vomiting [Unknown]
  - Iron deficiency anaemia [Unknown]
  - Gastrointestinal disorder [Unknown]
